FAERS Safety Report 11051619 (Version 1)
Quarter: 2015Q2

REPORT INFORMATION
  Report Type: Spontaneous
  Country: US (occurrence: None)
  Receive Date: 20150420
  Receipt Date: 20150420
  Transmission Date: 20150821
  Serious: No
  Sender: FDA-Public Use
  Company Number: None

PATIENT
  Age: 43 Year
  Sex: Female

DRUGS (1)
  1. KOATE [Suspect]
     Active Substance: ANTIHEMOPHILIC FACTOR HUMAN
     Dosage: 3000 UNITS, TWICE WEEKLY, IV
     Route: 042

REACTIONS (6)
  - Feeling abnormal [None]
  - Dizziness [None]
  - Product quality issue [None]
  - Confusional state [None]
  - Tremor [None]
  - Change in sustained attention [None]
